FAERS Safety Report 4938590-2 (Version None)
Quarter: 2006Q1

REPORT INFORMATION
  Report Type: 
  Country: None (occurrence: None)
  Receive Date: 20060306
  Receipt Date: 20060209
  Transmission Date: 20060701
  Serious: Yes (Other)
  Sender: FDA-Public Use
  Company Number: 2006028599

PATIENT
  Age: 32 Year
  Sex: Female

DRUGS (3)
  1. FLAGYL [Suspect]
     Indication: BACTERIAL INFECTION
     Dosage: 1000 MG (500 MG 2 IN 1 D) ORAL
     Route: 048
     Dates: start: 20051226, end: 20051231
  2. KLACID (CLARITHROMYCIN) [Suspect]
     Indication: BACTERIAL INFECTION
     Dosage: 500 MG (250 MG 2 IN 1D) ORAL
     Route: 048
     Dates: start: 20051226, end: 20051231
  3. PANTOPRAZOLE SODIUM [Suspect]
     Indication: BACTERIAL INFECTION
     Dosage: 40 MG (20 MG 2 IN 1D) ORAL
     Route: 048
     Dates: start: 20051226, end: 20051231

REACTIONS (7)
  - ANGIONEUROTIC OEDEMA [None]
  - APHTHOUS STOMATITIS [None]
  - PALATAL OEDEMA [None]
  - PHARYNGEAL OEDEMA [None]
  - STOMATITIS [None]
  - SWOLLEN TONGUE [None]
  - TONGUE COATED [None]
